FAERS Safety Report 20603668 (Version 2)
Quarter: 2022Q2

REPORT INFORMATION
  Report Type: Report from Study
  Country: US (occurrence: US)
  Receive Date: 20220316
  Receipt Date: 20220428
  Transmission Date: 20220720
  Serious: Yes (Hospitalization, Other)
  Sender: FDA-Public Use
  Company Number: US-ABBVIE-22K-163-4317434-00

PATIENT
  Age: 65 Year
  Sex: Female
  Weight: 55.388 kg

DRUGS (2)
  1. CREON [Suspect]
     Active Substance: PANCRELIPASE AMYLASE\PANCRELIPASE LIPASE\PANCRELIPASE PROTEASE
     Indication: Pancreatic failure
     Dosage: 1 CAPSULE PER MEAL
     Route: 048
     Dates: start: 202110, end: 202111
  2. CREON [Suspect]
     Active Substance: PANCRELIPASE AMYLASE\PANCRELIPASE LIPASE\PANCRELIPASE PROTEASE
     Dosage: 1 CAPSULE PER MEAL
     Route: 048

REACTIONS (18)
  - Calculus bladder [Unknown]
  - Renal disorder [Unknown]
  - Gastroenteritis [Not Recovered/Not Resolved]
  - Renal disorder [Not Recovered/Not Resolved]
  - Gastrointestinal scarring [Not Recovered/Not Resolved]
  - Renal impairment [Unknown]
  - Feeding disorder [Not Recovered/Not Resolved]
  - Calculus bladder [Not Recovered/Not Resolved]
  - Flatulence [Not Recovered/Not Resolved]
  - Abdominal pain [Not Recovered/Not Resolved]
  - Gastrointestinal inflammation [Not Recovered/Not Resolved]
  - Weight decreased [Not Recovered/Not Resolved]
  - Urinary tract infection [Not Recovered/Not Resolved]
  - Intentional product misuse [Unknown]
  - Drug ineffective [Unknown]
  - Bladder disorder [Unknown]
  - Urethral disorder [Unknown]
  - Renal disorder [Unknown]

NARRATIVE: CASE EVENT DATE: 20211101
